FAERS Safety Report 15593216 (Version 1)
Quarter: 2018Q4

REPORT INFORMATION
  Report Type: Spontaneous
  Country: US (occurrence: US)
  Receive Date: 20181107
  Receipt Date: 20181107
  Transmission Date: 20190205
  Serious: Yes (Other)
  Sender: FDA-Public Use
  Company Number: US-PFIZER INC-2018454234

PATIENT
  Age: 27 Year
  Sex: Male
  Weight: 112 kg

DRUGS (23)
  1. PROPOFOL. [Concomitant]
     Active Substance: PROPOFOL
     Dosage: 1948.8 MG, DAILY (DAY 5), 26.4  MG/DAY
  2. PROPOFOL. [Concomitant]
     Active Substance: PROPOFOL
     Dosage: 3292.8 MG, DAILY (DAY 6), 28.8 MG/DAY
  3. PROPOFOL. [Concomitant]
     Active Substance: PROPOFOL
     Dosage: 4912.8 MG, DAILY (DAY 9), 30.8 MG/DAY
  4. PROPOFOL. [Concomitant]
     Active Substance: PROPOFOL
     Dosage: 1881.6 MG, DAILY (DAY 14), 20 MG/DAY
  5. PROPOFOL. [Concomitant]
     Active Substance: PROPOFOL
     Dosage: 940.8 MG, DAILY (DAY 16), 20 MG/DAY
  6. CISATRACURIUM. [Concomitant]
     Active Substance: CISATRACURIUM
     Indication: INTRACRANIAL PRESSURE INCREASED
     Dosage: UNK
  7. PROPOFOL. [Concomitant]
     Active Substance: PROPOFOL
     Dosage: 1897.7 MG, DAILY (DAY 1), 28.2  MCG/KG/MIN
  8. PROPOFOL. [Concomitant]
     Active Substance: PROPOFOL
     Dosage: 4451.3 MG, DAILY (DAY 2), 33.1 MCG/KG/MIN
  9. PROPOFOL. [Concomitant]
     Active Substance: PROPOFOL
     Dosage: UNK (5 MCG/KG/MIN TITRATED BY EVERY 5 MINUTES, INFUSION)
  10. PROPOFOL. [Concomitant]
     Active Substance: PROPOFOL
     Dosage: 3225.6 MG, DAILY (DAY 15), 20 MG/DAY
  11. CLEVIDIPINE [Concomitant]
     Active Substance: CLEVIDIPINE
     Indication: BLOOD PRESSURE MANAGEMENT
     Dosage: 129 MG, DAILY (DAY 3, INFUSION)
  12. PROPOFOL. [Concomitant]
     Active Substance: PROPOFOL
     Dosage: 2453.2 MG, DAILY (DAY 7), 16.6 MG/DAY
  13. PROPOFOL. [Concomitant]
     Active Substance: PROPOFOL
     Dosage: 4536 MG, DAILY (DAY 8), 28.2 MG/DAY
  14. CLEVIDIPINE [Concomitant]
     Active Substance: CLEVIDIPINE
     Dosage: 168 MG, DAILY (DAY 4, INFUSION)
  15. MANNITOL. [Suspect]
     Active Substance: MANNITOL
     Indication: BRAIN OEDEMA
     Dosage: UNK
  16. HYPERTONIC SALINE [Concomitant]
     Active Substance: SODIUM CHLORIDE
     Indication: BRAIN OEDEMA
     Dosage: UNK
  17. PROPOFOL. [Concomitant]
     Active Substance: PROPOFOL
     Dosage: 4482 MG, DAILY (DAY 3), 27.8 MG/DAY
  18. FENTANYL. [Concomitant]
     Active Substance: FENTANYL
     Indication: INTRACRANIAL PRESSURE INCREASED
     Dosage: UNK
  19. PROPOFOL. [Concomitant]
     Active Substance: PROPOFOL
     Dosage: 3655.8 MG, DAILY (DAY 10), 28.6 MG/DAY
  20. PROPOFOL. [Concomitant]
     Active Substance: PROPOFOL
     Indication: INTRACRANIAL PRESSURE INCREASED
     Dosage: UNK (10 MCG/KG/MIN (MICROGRAM/KILOGRAM/MINUTE, INFUSION ON DAY ONE)
  21. PROPOFOL. [Concomitant]
     Active Substance: PROPOFOL
     Dosage: UNK (80 MCG/KG/MIN, INFUSION, MAXIMUM)
  22. PROPOFOL. [Concomitant]
     Active Substance: PROPOFOL
     Dosage: 4838.4 MG, DAILY (DAY 4), 20 MG/DAY
  23. PROPOFOL. [Concomitant]
     Active Substance: PROPOFOL
     Dosage: 1814.4 MG, DAILY (DAY 13), 22.5 MG/DAY

REACTIONS (1)
  - Acute kidney injury [Unknown]
